FAERS Safety Report 12739033 (Version 1)
Quarter: 2016Q3

REPORT INFORMATION
  Report Type: Spontaneous
  Country: CN (occurrence: CN)
  Receive Date: 20160913
  Receipt Date: 20160913
  Transmission Date: 20161109
  Serious: Yes (Other)
  Sender: FDA-Public Use
  Company Number: CN-PFIZER INC-2016425467

PATIENT
  Age: 62 Year
  Sex: Male
  Weight: 68.5 kg

DRUGS (7)
  1. NORVASC [Suspect]
     Active Substance: AMLODIPINE BESYLATE
     Indication: HYPERTENSION
     Dosage: 5 MG, 1X/DAY
     Route: 048
     Dates: start: 20160621, end: 20160705
  2. CEFOPERAZONE SODIUM AND TAZOBACTAM SODIUM [Suspect]
     Active Substance: CEFOPERAZONE\TAZOBACTAM SODIUM
     Indication: BRONCHITIS
     Dosage: 2 G, 2X/DAY
     Route: 041
     Dates: start: 20160621, end: 20160701
  3. CRAVIT [Suspect]
     Active Substance: LEVOFLOXACIN
     Indication: BRONCHITIS
     Dosage: 0.3 G, 1X/DAY
     Route: 041
     Dates: start: 20160621, end: 20160622
  4. ANDROGRAPHOLIDE [Suspect]
     Active Substance: ANDROGRAPHOLIDE
     Indication: DETOXIFICATION
     Dosage: 8 ML, 1X/DAY
     Route: 041
     Dates: start: 20160621, end: 20160626
  5. CRAVIT [Suspect]
     Active Substance: LEVOFLOXACIN
     Dosage: 0.6 G, 1X/DAY
     Route: 041
     Dates: start: 20160623, end: 20160626
  6. SODIUM CHLORIDE. [Concomitant]
     Active Substance: SODIUM CHLORIDE
     Indication: VEHICLE SOLUTION USE
     Dosage: 100 ML, 2X/DAY
     Route: 041
     Dates: start: 20160621, end: 20160701
  7. GLUCOSE [Concomitant]
     Active Substance: DEXTROSE
     Indication: VEHICLE SOLUTION USE
     Dosage: 250 ML, 1X/DAY
     Route: 041
     Dates: start: 20160621, end: 20160626

REACTIONS (1)
  - Renal impairment [Recovering/Resolving]

NARRATIVE: CASE EVENT DATE: 20160626
